FAERS Safety Report 7873257-2 (Version None)
Quarter: 2011Q4

REPORT INFORMATION
  Report Type: 
  Country: None (occurrence: None)
  Receive Date: 20111030
  Receipt Date: 20110502
  Transmission Date: 20120403
  Serious: No
  Sender: FDA-Public Use
  Company Number: US-AMGEN-USASP2011022812

PATIENT
  Sex: Female

DRUGS (3)
  1. METHOTREXATE [Concomitant]
     Dosage: 1 MG, QWK
     Dates: start: 20090101
  2. ENBREL [Suspect]
     Indication: RHEUMATOID ARTHRITIS
     Dosage: 50 MG, QWK
     Dates: start: 20110326
  3. ENBREL [Suspect]
     Indication: FIBROMYALGIA

REACTIONS (6)
  - ERYTHEMA [None]
  - INJECTION SITE PAIN [None]
  - OEDEMA PERIPHERAL [None]
  - HYPOAESTHESIA [None]
  - DIZZINESS [None]
  - PAIN IN EXTREMITY [None]
